FAERS Safety Report 5257810-0 (Version None)
Quarter: 2007Q1

REPORT INFORMATION
  Report Type: 
  Country: None (occurrence: None)
  Receive Date: 20070307
  Receipt Date: 20070301
  Transmission Date: 20070707
  Serious: Yes (Death, Life-Threatening)
  Sender: FDA-Public Use
  Company Number: HQWYE559304OCT06

PATIENT
  Sex: Male

DRUGS (1)
  1. TYGACIL [Suspect]
     Dosage: UNKNOWN
     Route: 042

REACTIONS (1)
  - HEPATIC FAILURE [None]
